FAERS Safety Report 6202001-X (Version None)
Quarter: 2009Q2

REPORT INFORMATION
  Report Type: 
  Country: None (occurrence: None)
  Receive Date: 20090526
  Receipt Date: 20090515
  Transmission Date: 20091009
  Serious: Yes (Other)
  Sender: FDA-Public Use
  Company Number: A0785682A

PATIENT
  Age: 44 Year
  Sex: Female
  Weight: 81.8 kg

DRUGS (1)
  1. AVANDAMET [Suspect]
     Route: 048
     Dates: start: 20050831, end: 20060112

REACTIONS (1)
  - CEREBROVASCULAR ACCIDENT [None]
